FAERS Safety Report 10722243 (Version 1)
Quarter: 2015Q1

REPORT INFORMATION
  Report Type: Report from Study
  Country: IT (occurrence: IT)
  Receive Date: 20150119
  Receipt Date: 20150119
  Transmission Date: 20150721
  Serious: Yes (Death)
  Sender: FDA-Public Use
  Company Number: IT-BAXTER-2015BAX003095

PATIENT

DRUGS (2)
  1. CEPROTIN [Suspect]
     Active Substance: PROTEIN C
     Indication: DISSEMINATED INTRAVASCULAR COAGULATION
     Route: 065
  2. CEPROTIN [Suspect]
     Active Substance: PROTEIN C
     Indication: OFF LABEL USE

REACTIONS (2)
  - Death [Fatal]
  - Off label use [None]
